FAERS Safety Report 4632665-3 (Version None)
Quarter: 2005Q2

REPORT INFORMATION
  Report Type: 
  Country: None (occurrence: None)
  Receive Date: 20050331
  Receipt Date: 20041013
  Transmission Date: 20051028
  Serious: Yes (Hospitalization)
  Sender: FDA-Public Use
  Company Number: 200414933BCC

PATIENT
  Age: 20 Year
  Sex: Male
  Weight: 68.0396 kg

DRUGS (1)
  1. ALEVE (CAPLET) [Suspect]
     Dosage: 6600 MG, ONCE, ORAL
     Route: 048
     Dates: start: 20041013

REACTIONS (1)
  - VOMITING [None]
